FAERS Safety Report 9640356 (Version 1)
Quarter: 2013Q4

REPORT INFORMATION
  Report Type: Spontaneous
  Country: US (occurrence: US)
  Receive Date: 20131023
  Receipt Date: 20131023
  Transmission Date: 20140711
  Serious: No
  Sender: FDA-Public Use
  Company Number: US-009507513-1310USA007127

PATIENT
  Age: 57 Year
  Sex: Female

DRUGS (5)
  1. NASONEX [Suspect]
     Indication: SEASONAL ALLERGY
     Dosage: 50 MICROGRAM,  ^TWO SPRAYS IN EACH NOSTRIL ONCE A DAY^
     Route: 045
     Dates: start: 20131014
  2. GEODON [Concomitant]
  3. LITHIUM [Concomitant]
  4. TRAMADOL HYDROCHLORIDE [Concomitant]
  5. BACTRIM [Concomitant]

REACTIONS (2)
  - Drug ineffective [Unknown]
  - Malaise [Unknown]
